FAERS Safety Report 7531904-9 (Version None)
Quarter: 2011Q2

REPORT INFORMATION
  Report Type: 
  Country: None (occurrence: None)
  Receive Date: 20110608
  Receipt Date: 20110525
  Transmission Date: 20111010
  Serious: Yes (Death)
  Sender: FDA-Public Use
  Company Number: GB-JNJFOC-20110312007

PATIENT
  Age: 72 Year
  Sex: Male
  Weight: 45 kg

DRUGS (3)
  1. TIOTROPIUM [Concomitant]
     Route: 055
  2. SYMBICORT [Concomitant]
     Route: 055
  3. INFLIXIMAB, RECOMBINANT [Suspect]
     Indication: ANKYLOSING SPONDYLITIS
     Route: 042
     Dates: start: 20040518

REACTIONS (2)
  - CHRONIC OBSTRUCTIVE PULMONARY DISEASE [None]
  - BRONCHOPNEUMONIA [None]
